FAERS Safety Report 4549416-3 (Version None)
Quarter: 2005Q1

REPORT INFORMATION
  Report Type: 
  Country: None (occurrence: None)
  Receive Date: 20050111
  Receipt Date: 20041119
  Transmission Date: 20050727
  Serious: Yes (Hospitalization)
  Sender: FDA-Public Use
  Company Number: 200414349FR

PATIENT
  Age: 56 Year
  Sex: Female
  Weight: 71 kg

DRUGS (9)
  1. CLAFORAN [Suspect]
     Indication: MENINGITIS
     Route: 042
     Dates: start: 20041010
  2. VANCOMYCIN [Suspect]
     Indication: MENINGITIS
     Route: 042
     Dates: start: 20041010, end: 20041012
  3. ACETAMINOPHEN [Suspect]
     Indication: HEADACHE
     Route: 048
     Dates: start: 20041010
  4. VIOXX [Suspect]
     Indication: ARTHRITIS CLIMACTERIC
     Route: 048
     Dates: end: 20041010
  5. MORPHINE CHLORHYDRATE [Suspect]
     Indication: HEADACHE
     Route: 048
     Dates: start: 20041010
  6. ACUPAN [Suspect]
     Indication: HEADACHE
     Route: 042
     Dates: start: 20041010
  7. TROXERUTIN [Concomitant]
     Dates: end: 20041001
  8. STRESAM [Concomitant]
     Dates: end: 20041001
  9. ZOLPIDEM TARTRATE [Concomitant]
     Dates: end: 20041001

REACTIONS (6)
  - BRADYCARDIA [None]
  - ENCEPHALOPATHY [None]
  - HYPERTENSION [None]
  - LEUKOENCEPHALOPATHY [None]
  - MENINGITIS [None]
  - NODAL RHYTHM [None]
